FAERS Safety Report 7913564-8 (Version None)
Quarter: 2011Q4

REPORT INFORMATION
  Report Type: 
  Country: None (occurrence: None)
  Receive Date: 20111110
  Receipt Date: 20111026
  Transmission Date: 20120403
  Serious: Yes (Hospitalization)
  Sender: FDA-Public Use
  Company Number: 2011SGN00267

PATIENT

DRUGS (1)
  1. ADCETRIS [Suspect]
     Indication: PRODUCT USED FOR UNKNOWN INDICATION
     Dosage: 1.2 MG/KG,

REACTIONS (4)
  - MYALGIA [None]
  - NEUROPATHY PERIPHERAL [None]
  - URINARY INCONTINENCE [None]
  - PAIN [None]
